FAERS Safety Report 16355841 (Version 5)
Quarter: 2019Q3

REPORT INFORMATION
  Report Type: Report from Study
  Country: GB (occurrence: GB)
  Receive Date: 20190526
  Receipt Date: 20190717
  Transmission Date: 20191004
  Serious: Yes (Other)
  Sender: FDA-Public Use
  Company Number: GB-BRISTOL-MYERS SQUIBB COMPANY-BMS-2019-049606

PATIENT
  Sex: Male
  Weight: 29.2 kg

DRUGS (16)
  1. DEXAMETHASONE. [Concomitant]
     Active Substance: DEXAMETHASONE
     Indication: PRODUCT USED FOR UNKNOWN INDICATION
     Dosage: 3 MILLIGRAM, TID
     Route: 065
     Dates: end: 20190524
  2. MEROPENEM. [Concomitant]
     Active Substance: MEROPENEM
     Indication: CATHETER SITE INFECTION
     Dosage: 1500 MILLIGRAM, TID
     Route: 042
     Dates: start: 20190515, end: 20190528
  3. MELATONIN [Concomitant]
     Active Substance: MELATONIN
     Indication: HORMONE THERAPY
     Dosage: 4 MILLIGRAM, QD
     Route: 048
     Dates: start: 20190520
  4. ORAMORPH [MORPHINE SULFATE] [Concomitant]
     Indication: ANALGESIC THERAPY
     Dosage: 10 MILLIGRAM, QD
     Route: 048
     Dates: start: 20190519, end: 20190521
  5. TRIMETHOPRIME [Concomitant]
     Active Substance: TRIMETHOPRIM
     Indication: PROPHYLAXIS
     Dosage: 50 MILLIGRAM, QD
     Route: 048
     Dates: start: 20190524, end: 20190524
  6. NIVOLUMAB [Suspect]
     Active Substance: NIVOLUMAB
     Indication: NEUROBLASTOMA
     Dosage: 87 MILLIGRAM, Q2WK
     Route: 042
     Dates: start: 20190424
  7. 131-I MIBG [Suspect]
     Active Substance: IOBENGUANE I-131
     Indication: NEUROBLASTOMA
     Dosage: UNK
     Route: 065
     Dates: start: 20190109, end: 20190123
  8. ONDANSETRON [Concomitant]
     Active Substance: ONDANSETRON
     Indication: MALAISE
     Dosage: 2.5 MILLIGRAM
     Route: 042
     Dates: end: 20190521
  9. MOVICOL PLAIN [Concomitant]
     Active Substance: POLYETHYLENE GLYCOL 3350\POTASSIUM CHLORIDE\SODIUM BICARBONATE\SODIUM CHLORIDE
     Indication: CONSTIPATION
     Dosage: 1 DOSAGE FORM, PRN
     Route: 048
     Dates: end: 20190524
  10. DEXAMETHASONE. [Concomitant]
     Active Substance: DEXAMETHASONE
     Indication: PRODUCT USED FOR UNKNOWN INDICATION
     Dosage: 4 UNK
     Route: 065
     Dates: end: 20190524
  11. OMEPRAZOLE. [Concomitant]
     Active Substance: OMEPRAZOLE
     Indication: PRODUCT USED FOR UNKNOWN INDICATION
     Dosage: 20 MILLIGRAM, QD
     Route: 048
     Dates: start: 20190521, end: 20190521
  12. RANITIDINE. [Concomitant]
     Active Substance: RANITIDINE
     Indication: HYPERCHLORHYDRIA
     Dosage: 97.5 MILLIGRAM
     Route: 065
     Dates: end: 20190524
  13. PARACETAMOL [Concomitant]
     Active Substance: ACETAMINOPHEN
     Indication: PROCEDURAL PAIN
     Dosage: 390 MILLIGRAM, PRN
     Route: 042
     Dates: start: 20190517, end: 20190522
  14. ORAMORPH [MORPHINE SULFATE] [Concomitant]
     Indication: PRODUCT USED FOR UNKNOWN INDICATION
     Dosage: 5 MILLIGRAM, PRN
     Route: 048
     Dates: start: 20190519
  15. ORAMORPH [MORPHINE SULFATE] [Concomitant]
     Indication: PRODUCT USED FOR UNKNOWN INDICATION
     Dosage: 25 MILLIGRAM, BID, TAB
     Route: 048
     Dates: start: 20190521
  16. MORPHINE [Concomitant]
     Active Substance: MORPHINE
     Indication: PROCEDURAL PAIN
     Dosage: 1 DOSAGE FORM
     Route: 042
     Dates: start: 20190515, end: 20190519

REACTIONS (1)
  - Tumour compression [Recovered/Resolved with Sequelae]
